FAERS Safety Report 7886304-9 (Version None)
Quarter: 2011Q4

REPORT INFORMATION
  Report Type: 
  Country: None (occurrence: None)
  Receive Date: 20111102
  Receipt Date: 20110630
  Transmission Date: 20120403
  Serious: No
  Sender: FDA-Public Use
  Company Number: US-AMGEN-USASP2011033575

PATIENT
  Sex: Male

DRUGS (3)
  1. HUMIRA [Concomitant]
  2. REMICADE [Concomitant]
  3. ENBREL [Suspect]
     Indication: ANKYLOSING SPONDYLITIS
     Dosage: 25 MG, 2 TIMES/WK
     Dates: start: 20060101, end: 20070101

REACTIONS (8)
  - BACK PAIN [None]
  - JOINT STIFFNESS [None]
  - JOINT INJURY [None]
  - MUSCULOSKELETAL PAIN [None]
  - DRUG INEFFECTIVE [None]
  - MUSCULOSKELETAL STIFFNESS [None]
  - NECK PAIN [None]
  - ARTHRALGIA [None]
